FAERS Safety Report 6647592-X (Version None)
Quarter: 2010Q1

REPORT INFORMATION
  Report Type: 
  Country: None (occurrence: None)
  Receive Date: 20100323
  Receipt Date: 20100323
  Transmission Date: 20100710
  Serious: Yes (Hospitalization)
  Sender: FDA-Public Use
  Company Number: None

PATIENT
  Age: 17 Year
  Sex: Female
  Weight: 56.6996 kg

DRUGS (1)
  1. OCELLA 3MG BARR LABORATORIES INC POMONA.NY [Suspect]
     Indication: HORMONE LEVEL ABNORMAL
     Dosage: 1 1 A DAY
     Dates: start: 20090921, end: 20100221

REACTIONS (3)
  - COMPLICATED MIGRAINE [None]
  - FACIAL PALSY [None]
  - SPEECH DISORDER [None]
